FAERS Safety Report 15714737 (Version 1)
Quarter: 2018Q4

REPORT INFORMATION
  Report Type: Spontaneous
  Country: US (occurrence: US)
  Receive Date: 20181212
  Receipt Date: 20181212
  Transmission Date: 20190205
  Serious: No
  Sender: FDA-Public Use
  Company Number: None

PATIENT
  Sex: Female

DRUGS (2)
  1. MINIVELLE [Suspect]
     Active Substance: ESTRADIOL
  2. SANDOZ ESTRADIOL PATCH [Suspect]
     Active Substance: ESTRADIOL

REACTIONS (5)
  - Migraine [None]
  - Drug ineffective [None]
  - Hot flush [None]
  - Irritability [None]
  - Mood swings [None]
